FAERS Safety Report 7587922-8 (Version None)
Quarter: 2011Q3

REPORT INFORMATION
  Report Type: 
  Country: None (occurrence: None)
  Receive Date: 20110705
  Receipt Date: 20110627
  Transmission Date: 20111222
  Serious: Yes (Other)
  Sender: FDA-Public Use
  Company Number: JP-AMGEN-JPNSP2011028878

PATIENT
  Age: 31 Year
  Sex: Female
  Weight: 54.5 kg

DRUGS (7)
  1. RHEUMATREX [Concomitant]
     Dosage: 8 MG, WEEKLY
     Route: 048
     Dates: start: 20101012
  2. BREDININ [Concomitant]
     Dosage: 300 MG, WEEKLY
     Route: 048
     Dates: start: 20110427
  3. ENBREL [Suspect]
     Indication: RHEUMATOID ARTHRITIS
     Dosage: 50 MG, WEEKLY
     Route: 058
     Dates: start: 20101201
  4. RHEUMATREX [Suspect]
     Indication: RHEUMATOID ARTHRITIS
     Dosage: 8 MG, WEEKLY
     Route: 048
     Dates: start: 20101012
  5. RHEUMATREX [Concomitant]
     Dosage: 10 MG, WEEKLY
     Route: 048
     Dates: start: 20110105
  6. RHEUMATREX [Concomitant]
     Indication: RHEUMATOID ARTHRITIS
     Dosage: 6 MG, WEEKLY
     Route: 048
     Dates: start: 20100922
  7. FOLIC ACID [Concomitant]
     Dosage: 5 MG, WEEKLY
     Route: 048
     Dates: start: 20100922

REACTIONS (1)
  - EYELID PTOSIS [None]
